FAERS Safety Report 23309855 (Version 1)
Quarter: 2023Q4

REPORT INFORMATION
  Report Type: Report from Study
  Country: ZA (occurrence: ZA)
  Receive Date: 20231218
  Receipt Date: 20231218
  Transmission Date: 20240110
  Serious: Yes (Hospitalization)
  Sender: FDA-Public Use
  Company Number: ZA-ABBVIE-5541561

PATIENT
  Sex: Female

DRUGS (3)
  1. BOTOX [Suspect]
     Active Substance: ONABOTULINUMTOXINA
     Indication: Muscle spasticity
     Dosage: TOTAL DOSE 350U (50U + 100 U + 200U)?FORM STRENGTH: 50, 100, 200IU
     Route: 065
  2. BOTOX [Suspect]
     Active Substance: ONABOTULINUMTOXINA
     Indication: Muscle spasticity
     Dosage: TOTAL DOSE 350U (50U + 100 U + 200U)?FORM STRENGTH: 50, 100, 200IU
     Route: 065
  3. BOTOX [Suspect]
     Active Substance: ONABOTULINUMTOXINA
     Indication: Muscle spasticity
     Dosage: TOTAL DOSE 350U (50U + 100 U + 200U)?FORM STRENGTH: 50, 100, 200IU
     Route: 065

REACTIONS (1)
  - Illness [Unknown]
